FAERS Safety Report 10854629 (Version 1)
Quarter: 2015Q1

REPORT INFORMATION
  Report Type: Spontaneous
  Country: US (occurrence: None)
  Receive Date: 20150218
  Receipt Date: 20150218
  Transmission Date: 20150721
  Serious: Yes (Life-Threatening, Other)
  Sender: FDA-Public Use
  Company Number: None

PATIENT
  Age: 68 Year
  Sex: Female
  Weight: 78.93 kg

DRUGS (1)
  1. VICTOZA [Suspect]
     Active Substance: LIRAGLUTIDE
     Indication: BLOOD GLUCOSE INCREASED
     Dosage: .6MG FOR FIRST WEEK, ONCE DAILY, SUBCUTAENOUSLY IN ABDOMEN
     Route: 058
     Dates: start: 20150201, end: 20150202

REACTIONS (3)
  - Heart rate irregular [None]
  - Tachycardia [None]
  - Palpitations [None]

NARRATIVE: CASE EVENT DATE: 20150202
